FAERS Safety Report 8847596 (Version 1)
Quarter: 2012Q4

REPORT INFORMATION
  Report Type: 
  Country: US (occurrence: US)
  Receive Date: 20121018
  Receipt Date: 20121018
  Transmission Date: 20130627
  Serious: No
  Sender: FDA-Public Use
  Company Number: US-B.I. PHARMACEUTICALS,INC./RIDGEFIELD-2012-BP-24204BP

PATIENT
  Age: 81 Year
  Sex: Male

DRUGS (6)
  1. FLOMAX CAPSULES [Suspect]
     Indication: BENIGN PROSTATIC HYPERPLASIA
     Dosage: 0.4 mg
     Route: 048
     Dates: start: 201208, end: 20121001
  2. LANOXIN [Concomitant]
     Indication: ATRIAL FIBRILLATION
     Dosage: 0.25 mg
     Route: 048
  3. TOPROL [Concomitant]
     Indication: HYPERTENSION
     Dosage: 150 mg
     Route: 048
     Dates: start: 2002
  4. HYDROCHLOROTHYAZIDE [Concomitant]
     Indication: HYPERTENSION
     Dosage: 12.5 mg
     Route: 048
     Dates: start: 2008
  5. COUMADIN [Concomitant]
     Indication: ATRIAL FIBRILLATION
     Route: 048
     Dates: start: 2002
  6. ACCUPRIL [Concomitant]
     Indication: HYPERTENSION
     Dosage: 40 mg
     Route: 048

REACTIONS (3)
  - Gout [Not Recovered/Not Resolved]
  - Erythema [Not Recovered/Not Resolved]
  - Oedema peripheral [Not Recovered/Not Resolved]
